FAERS Safety Report 4709333-2 (Version None)
Quarter: 2005Q3

REPORT INFORMATION
  Report Type: 
  Country: None (occurrence: None)
  Receive Date: 20050708
  Receipt Date: 20050628
  Transmission Date: 20060218
  Serious: Yes (Hospitalization, Other)
  Sender: FDA-Public Use
  Company Number: GB-JNJFOC-20050500498

PATIENT
  Sex: Male
  Weight: 60 kg

DRUGS (12)
  1. REMICADE [Suspect]
     Indication: RHEUMATOID ARTHRITIS
     Route: 042
  2. ASPIRIN [Concomitant]
  3. BISOPROLOL [Concomitant]
  4. LISINOPRIL [Concomitant]
  5. LANSOPRAZOLE [Concomitant]
  6. FRUSEMIDE [Concomitant]
  7. TAMSULOSIN [Concomitant]
  8. TAMAZEPAM [Concomitant]
  9. COPROXAMOL [Concomitant]
  10. COPROXAMOL [Concomitant]
  11. GLYCERYL TRINITRATE [Concomitant]
  12. AMOXICILLIN [Concomitant]

REACTIONS (5)
  - ACUTE MYOCARDIAL INFARCTION [None]
  - CARDIOGENIC SHOCK [None]
  - PNEUMONIA [None]
  - PULMONARY OEDEMA [None]
  - VENTRICULAR TACHYCARDIA [None]
